FAERS Safety Report 8439118-5 (Version None)
Quarter: 2012Q2

REPORT INFORMATION
  Report Type: 
  Country: None (occurrence: None)
  Receive Date: 20120615
  Receipt Date: 20120607
  Transmission Date: 20120825
  Serious: Yes (Other)
  Sender: FDA-Public Use
  Company Number: GB-JNJFOC-20120509154

PATIENT
  Sex: Female

DRUGS (4)
  1. OXYBUTYNIN CHLORIDE [Suspect]
     Indication: INCONTINENCE
     Route: 048
     Dates: start: 20120428, end: 20120502
  2. PAIN KILLERS [Concomitant]
     Indication: PRODUCT USED FOR UNKNOWN INDICATION
     Route: 065
  3. OXYBUTYNIN CHLORIDE [Suspect]
     Indication: POLLAKIURIA
     Route: 048
     Dates: start: 20120428, end: 20120502
  4. MORPHINE [Concomitant]
     Indication: PRODUCT USED FOR UNKNOWN INDICATION
     Route: 065

REACTIONS (7)
  - CHEST PAIN [None]
  - NAUSEA [None]
  - RASH [None]
  - PAIN [None]
  - VISION BLURRED [None]
  - VOMITING [None]
  - DIZZINESS [None]
